FAERS Safety Report 6137990-5 (Version None)
Quarter: 2009Q1

REPORT INFORMATION
  Report Type: 
  Country: None (occurrence: None)
  Receive Date: 20090327
  Receipt Date: 20090327
  Transmission Date: 20090719
  Serious: No
  Sender: FDA-Public Use
  Company Number: None

PATIENT

DRUGS (1)
  1. SULFAZINE EC 500MG QUALITEST [Suspect]
     Indication: CROHN'S DISEASE
     Dosage: 2 TAB QID PO
     Route: 048
     Dates: start: 20090221

REACTIONS (3)
  - BURNING SENSATION [None]
  - GLOSSODYNIA [None]
  - PRODUCT QUALITY ISSUE [None]
